FAERS Safety Report 9736452 (Version 1)
Quarter: 2013Q4

REPORT INFORMATION
  Report Type: Spontaneous
  Country: US (occurrence: US)
  Receive Date: 20131206
  Receipt Date: 20131206
  Transmission Date: 20140711
  Serious: No
  Sender: FDA-Public Use
  Company Number: US-GLAXOSMITHKLINE-A1034894A

PATIENT
  Age: 34 Year
  Sex: Male

DRUGS (6)
  1. PROPAFENONE HYDROCHLORIDE [Suspect]
     Indication: ATRIAL FIBRILLATION
     Dosage: 225MG TWICE PER DAY
     Route: 048
     Dates: start: 2011, end: 2011
  2. RYTHMOL SR [Suspect]
     Indication: ATRIAL FIBRILLATION
     Dosage: 325MG TWICE PER DAY
     Route: 048
     Dates: start: 201107
  3. RYTHMOL SR [Suspect]
     Indication: ATRIAL FIBRILLATION
     Dosage: 425MG THREE TIMES PER DAY
     Route: 048
     Dates: start: 201107, end: 201107
  4. BLOOD THINNER [Concomitant]
  5. ATENOLOL [Concomitant]
  6. DIURETIC [Concomitant]

REACTIONS (5)
  - Heart rate decreased [Recovered/Resolved]
  - Abdominal distension [Unknown]
  - Fluid retention [Unknown]
  - Weight increased [Unknown]
  - Heart rate increased [Unknown]
